FAERS Safety Report 5721074-1 (Version None)
Quarter: 2008Q2

REPORT INFORMATION
  Report Type: 
  Country: None (occurrence: None)
  Receive Date: 20080429
  Receipt Date: 20080422
  Transmission Date: 20081010
  Serious: Yes (Hospitalization, Other)
  Sender: FDA-Public Use
  Company Number: MX-ABBOTT-08P-107-0448722-00

PATIENT
  Sex: Female
  Weight: 57.5 kg

DRUGS (4)
  1. KALETRA [Suspect]
     Indication: HIV INFECTION
     Dosage: 800/200 MG, 2 400/200 MG BID
     Route: 048
     Dates: start: 20060213, end: 20071112
  2. KALETRA [Suspect]
     Dosage: 800/200 MG, 2 400/200 MG BID
     Route: 048
     Dates: start: 20071204
  3. LAMIVUDINE + ZIDOVUDINE [Concomitant]
     Indication: HIV INFECTION
     Dosage: 300/600 MG, 150/300 MG BID
     Route: 048
     Dates: start: 20060213, end: 20071112
  4. LAMIVUDINE + ZIDOVUDINE [Concomitant]
     Dosage: 300/600 MG DAILY, 150/300 MG BID
     Route: 048
     Dates: start: 20071204

REACTIONS (11)
  - ABDOMINAL DISTENSION [None]
  - ABDOMINAL PAIN [None]
  - CHOLECYSTITIS INFECTIVE [None]
  - CONSTIPATION [None]
  - FLATULENCE [None]
  - GALLBLADDER NECROSIS [None]
  - GALLBLADDER OEDEMA [None]
  - GASTROINTESTINAL OEDEMA [None]
  - HAEMATEMESIS [None]
  - PYREXIA [None]
  - VOMITING [None]
